FAERS Safety Report 12965698 (Version 1)
Quarter: 2016Q4

REPORT INFORMATION
  Report Type: Report from Study
  Country: None (occurrence: US)
  Receive Date: 20161122
  Receipt Date: 20161122
  Transmission Date: 20170207
  Serious: Yes (Hospitalization)
  Sender: FDA-Public Use
  Company Number: US-ABBVIE-16P-163-1786882-00

PATIENT
  Age: 62 Year
  Sex: Male

DRUGS (1)
  1. DUOPA [Suspect]
     Active Substance: CARBIDOPA\LEVODOPA
     Indication: PARKINSON^S DISEASE
     Dosage: 16HR ON?AM:7ML CONTINUOUS 1ML AFTER LUNCH 1.1ML
     Route: 050
     Dates: start: 201607, end: 201608

REACTIONS (5)
  - Dyskinesia [Unknown]
  - Infection [Recovering/Resolving]
  - Device dislocation [Unknown]
  - Device dislocation [Recovering/Resolving]
  - Abscess [Recovering/Resolving]

NARRATIVE: CASE EVENT DATE: 201607
